FAERS Safety Report 20034956 (Version 1)
Quarter: 2021Q4

REPORT INFORMATION
  Report Type: Spontaneous
  Country: FR (occurrence: FR)
  Receive Date: 20211104
  Receipt Date: 20211104
  Transmission Date: 20220303
  Serious: Yes (Hospitalization)
  Sender: FDA-Public Use
  Company Number: None

PATIENT
  Age: 47 Year
  Sex: Male

DRUGS (1)
  1. TRAMADOL [Suspect]
     Active Substance: TRAMADOL
     Indication: Product used for unknown indication
     Dosage: UNK (NP)
     Route: 048
     Dates: start: 20210624, end: 20210624

REACTIONS (7)
  - N-terminal prohormone brain natriuretic peptide increased [Recovering/Resolving]
  - Ileus [Recovered/Resolved]
  - Hepatic cytolysis [Recovering/Resolving]
  - Poisoning deliberate [Recovered/Resolved]
  - Rhabdomyolysis [Recovering/Resolving]
  - Troponin increased [Recovered/Resolved]
  - Intentional overdose [Unknown]

NARRATIVE: CASE EVENT DATE: 20210624
